FAERS Safety Report 14108432 (Version 1)
Quarter: 2017Q4

REPORT INFORMATION
  Report Type: Spontaneous
  Country: DE (occurrence: DE)
  Receive Date: 20171019
  Receipt Date: 20171019
  Transmission Date: 20180321
  Serious: Yes (Other)
  Sender: FDA-Public Use
  Company Number: DE-BAYER-2017-194516

PATIENT
  Sex: Female

DRUGS (1)
  1. MIRENA [Suspect]
     Active Substance: LEVONORGESTREL
     Dosage: 20 MCG/24HR, CONT
     Route: 015
     Dates: start: 20170127, end: 20170608

REACTIONS (4)
  - Pain in extremity [Recovering/Resolving]
  - Alopecia [Recovered/Resolved with Sequelae]
  - Hormone level abnormal [None]
  - Gait disturbance [Recovering/Resolving]

NARRATIVE: CASE EVENT DATE: 201703
